FAERS Safety Report 13068439 (Version 2)
Quarter: 2017Q2

REPORT INFORMATION
  Report Type: Spontaneous
  Country: FR (occurrence: FR)
  Receive Date: 20161228
  Receipt Date: 20170522
  Transmission Date: 20170830
  Serious: Yes (Other)
  Sender: FDA-Public Use
  Company Number: FR-GLAXOSMITHKLINE-FR2016191405

PATIENT

DRUGS (24)
  1. FOSAMPRENAVIR [Suspect]
     Active Substance: FOSAMPRENAVIR
     Indication: HIV INFECTION
     Dosage: DOSAGE FORM: UNSPECIFIED, MOTHER DOSING
     Route: 064
  2. FOSAMPRENAVIR [Suspect]
     Active Substance: FOSAMPRENAVIR
     Dosage: DOSAGE FORM: UNSPECIFIED, MOTHER DOSING
     Route: 064
  3. LOPINAVIR [Suspect]
     Active Substance: LOPINAVIR
     Dosage: DOSAGE FORM: UNSPECIFIED, MOTHER DOSING
     Route: 064
  4. ZIDOVUDINE. [Suspect]
     Active Substance: ZIDOVUDINE
     Dosage: DOSAGE FORM: UNSPECIFIED, MOTHER DOSING
     Route: 064
  5. TENOFOVIR DISOPROXIL FUMARATE. [Suspect]
     Active Substance: TENOFOVIR DISOPROXIL FUMARATE
     Indication: HIV INFECTION
     Route: 064
  6. RITONAVIR. [Suspect]
     Active Substance: RITONAVIR
     Dosage: DOSAGE FORM: UNSPECIFIED, MOTHER DOSING
     Route: 064
  7. CRIXIVAN [Suspect]
     Active Substance: INDINAVIR SULFATE
     Indication: HIV INFECTION
     Dosage: DOSAGE FORM: UNSPECIFIED, MOTHER DOSING
     Route: 064
  8. VIRACEPT [Suspect]
     Active Substance: NELFINAVIR MESYLATE
     Indication: HIV INFECTION
     Dosage: DOSAGE FORM: UNSPECIFIED, MOTHER DOSING
     Route: 064
  9. ABACAVIR. [Suspect]
     Active Substance: ABACAVIR
     Indication: HIV INFECTION
     Dosage: DOSAGE FORM: UNSPECIFIED, MOTHER DOSING
     Route: 064
  10. DIDANOSINE. [Suspect]
     Active Substance: DIDANOSINE
     Dosage: DOSAGE FORM: UNSPECIFIED, MOTHER DOSING
     Route: 064
  11. ATAZANAVIR [Suspect]
     Active Substance: ATAZANAVIR
     Indication: HIV INFECTION
     Dosage: DOSAGE FORM: UNSPECIFIED, MOTHER DOSING
     Route: 064
  12. LAMIVUDINE. [Suspect]
     Active Substance: LAMIVUDINE
     Dosage: DOSAGE FORM: UNSPECIFIED, MOTHER DOSING
  13. ABACAVIR. [Suspect]
     Active Substance: ABACAVIR
     Dosage: DOSAGE FORM: UNSPECIFIED, MOTHER DOSING
     Route: 064
  14. RILPIVIRINE [Suspect]
     Active Substance: RILPIVIRINE
     Indication: HIV INFECTION
     Route: 064
  15. PREZISTA [Suspect]
     Active Substance: DARUNAVIR ETHANOLATE
     Indication: HIV INFECTION
     Route: 064
  16. LOPINAVIR [Suspect]
     Active Substance: LOPINAVIR
     Indication: HIV INFECTION
     Dosage: DOSAGE FORM: UNSPECIFIED, MOTHER DOSING
     Route: 064
  17. LAMIVUDINE. [Suspect]
     Active Substance: LAMIVUDINE
     Indication: HIV INFECTION
     Dosage: DOSAGE FORM: UNSPECIFIED, MOTHER DOSING
     Route: 064
  18. RITONAVIR. [Suspect]
     Active Substance: RITONAVIR
     Indication: HIV INFECTION
     Dosage: DOSAGE FORM: UNSPECIFIED, MOTHER DOSING
     Route: 064
  19. DIDANOSINE. [Suspect]
     Active Substance: DIDANOSINE
     Indication: HIV INFECTION
     Dosage: DOSAGE FORM: UNSPECIFIED, MOTHER DOSING
     Route: 064
  20. EMTRIVA [Suspect]
     Active Substance: EMTRICITABINE
     Indication: HIV INFECTION
     Dosage: DOSAGE FORM: UNSPECIFIED, MOTHER DOSING
     Route: 064
  21. ATAZANAVIR [Suspect]
     Active Substance: ATAZANAVIR
     Dosage: DOSAGE FORM: UNSPECIFIED, MOTHER DOSING
     Route: 064
  22. ZIDOVUDINE. [Suspect]
     Active Substance: ZIDOVUDINE
     Indication: HIV INFECTION
     Dosage: DOSAGE FORM: UNSPECIFIED, MOTHER DOSING
     Route: 064
  23. EMTRICITABINE + RILPIVIRINE HYDROCHLORIDE + TENOFOVIR DISOPROXIL FUMAR [Suspect]
     Active Substance: EMTRICITABINE\RILPIVIRINE HYDROCHLORIDE\TENOFOVIR DISOPROXIL FUMARATE
     Indication: HIV INFECTION
     Dosage: UNK
     Route: 064
  24. INVIRASE [Suspect]
     Active Substance: SAQUINAVIR MESYLATE
     Indication: HIV INFECTION
     Dosage: DOSAGE FORM: UNSPECIFIED, MOTHER DOSING
     Route: 062

REACTIONS (2)
  - Premature baby [Unknown]
  - Foetal exposure during pregnancy [Unknown]
